FAERS Safety Report 9205750 (Version 2)
Quarter: 2013Q3

REPORT INFORMATION
  Report Type: Spontaneous
  Country: ZA (occurrence: None)
  Receive Date: 20130401
  Receipt Date: 20130820
  Transmission Date: 20140515
  Serious: Yes (Death)
  Sender: FDA-Public Use
  Company Number: 1646923

PATIENT
  Sex: 0
  Weight: 2.21 kg

DRUGS (13)
  1. NORADRENALINE TARTRATE [Suspect]
     Indication: SEPTIC SHOCK
     Dates: start: 20110912, end: 20110914
  2. NORADRENALINE TARTRATE [Suspect]
     Indication: BLOOD PRESSURE ABNORMAL
     Dates: start: 20110912, end: 20110914
  3. GLUCOSE [Concomitant]
  4. HYDROCORTISONE [Concomitant]
  5. DIAZOXIDE [Concomitant]
  6. GLUCAGON [Concomitant]
  7. OCTREOTIDE [Concomitant]
  8. TPN /00897001/ [Concomitant]
  9. NIFEDIPINE [Concomitant]
  10. DEXTROSE WATER [Concomitant]
  11. FLUCONAZOLE [Concomitant]
  12. CIPROFLOXACIN [Concomitant]
  13. ERTAPENEM [Concomitant]

REACTIONS (1)
  - Multi-organ failure [None]
